FAERS Safety Report 23200274 (Version 2)
Quarter: 2023Q4

REPORT INFORMATION
  Report Type: Spontaneous
  Country: US (occurrence: US)
  Receive Date: 20231118
  Receipt Date: 20231121
  Transmission Date: 20240109
  Serious: Yes (Death, Hospitalization, Other)
  Sender: FDA-Public Use
  Company Number: US-002147023-NVSC2023US245841

PATIENT
  Age: 68 Year
  Sex: Female
  Weight: 80.56 kg

DRUGS (2)
  1. LUTATHERA [Suspect]
     Active Substance: LUTETIUM OXODOTREOTIDE LU-177
     Indication: Neuroendocrine tumour
     Dosage: UNK (G8WKS X4) (VIALS)
     Route: 042
     Dates: start: 20230425, end: 20230425
  2. LUTATHERA [Suspect]
     Active Substance: LUTETIUM OXODOTREOTIDE LU-177
     Dosage: UNK (VIALS)
     Route: 041
     Dates: start: 20230620, end: 20230620

REACTIONS (3)
  - Death [Fatal]
  - Hypertensive emergency [Fatal]
  - Cerebrovascular accident [Unknown]

NARRATIVE: CASE EVENT DATE: 20230620
